FAERS Safety Report 5139813-X (Version None)
Quarter: 2006Q4

REPORT INFORMATION
  Report Type: 
  Country: None (occurrence: None)
  Receive Date: 20060905
  Receipt Date: 20060427
  Transmission Date: 20070319
  Serious: No
  Sender: FDA-Public Use
  Company Number: 35004

PATIENT
  Sex: Female

DRUGS (14)
  1. NEVANAC [Suspect]
     Indication: PROPHYLAXIS
  2. BSS [Concomitant]
  3. MIOTIC [Concomitant]
  4. VIGAMOX [Concomitant]
  5. ECONOPRED PLUS [Concomitant]
  6. TETRACAINE 0.5% STERI-UNITS [Concomitant]
  7. METOPROLOL SUCCINATE [Concomitant]
  8. PREVACID [Concomitant]
  9. MIRTAZAPINE [Concomitant]
  10. NORVASC [Concomitant]
  11. NAMENDA [Concomitant]
  12. ARICEPT [Concomitant]
  13. GABAPENTIN [Concomitant]
  14. LORAZEPAM [Concomitant]

REACTIONS (1)
  - ANTERIOR CHAMBER INFLAMMATION [None]
